FAERS Safety Report 19100310 (Version 1)
Quarter: 2021Q2

REPORT INFORMATION
  Report Type: Spontaneous
  Country: US (occurrence: US)
  Receive Date: 20210407
  Receipt Date: 20210407
  Transmission Date: 20210717
  Serious: No
  Sender: FDA-Public Use
  Company Number: US-JNJFOC-20210342969

PATIENT

DRUGS (1)
  1. ZYRTEC [Suspect]
     Active Substance: CETIRIZINE HYDROCHLORIDE
     Indication: SINUS DISORDER
     Route: 065
     Dates: start: 20210227

REACTIONS (3)
  - Wrong product administered [Unknown]
  - Expired product administered [Unknown]
  - Product commingling [Unknown]

NARRATIVE: CASE EVENT DATE: 20210227
